FAERS Safety Report 6474665-7 (Version None)
Quarter: 2009Q4

REPORT INFORMATION
  Report Type: 
  Country: None (occurrence: None)
  Receive Date: 20091123
  Receipt Date: 20090827
  Transmission Date: 20100525
  Serious: No
  Sender: FDA-Public Use
  Company Number: 8051116

PATIENT
  Age: 21 Year
  Sex: Female
  Weight: 44.1 kg

DRUGS (1)
  1. CIMZIA [Suspect]
     Indication: CROHN'S DISEASE
     Dosage: 400 MG SC
     Route: 058
     Dates: start: 20090201

REACTIONS (3)
  - AXILLARY MASS [None]
  - BODY TEMPERATURE INCREASED [None]
  - HYPOAESTHESIA [None]
